FAERS Safety Report 8805049 (Version 1)
Quarter: 2012Q4

REPORT INFORMATION
  Report Type: 
  Country: US (occurrence: US)
  Receive Date: 20120924
  Receipt Date: 20120924
  Transmission Date: 20130627
  Serious: Yes (Other)
  Sender: FDA-Public Use
  Company Number: CHPA2012US020140

PATIENT
  Age: 84 Year
  Sex: Female

DRUGS (2)
  1. MAGNESIUM SALICYLATE [Suspect]
     Indication: BACK PAIN
     Dosage: 1 pill, as needed
     Route: 048
     Dates: start: 2002
  2. MAGNESIUM SALICYLATE [Suspect]
     Dosage: 2 pills, daily
     Route: 048
     Dates: start: 2002, end: 2002

REACTIONS (5)
  - Cataract [Not Recovered/Not Resolved]
  - Off label use [Unknown]
  - Therapeutic response unexpected [Unknown]
  - Incorrect drug administration duration [Unknown]
  - Underdose [Unknown]
